FAERS Safety Report 6093230-7 (Version None)
Quarter: 2009Q1

REPORT INFORMATION
  Report Type: 
  Country: None (occurrence: None)
  Receive Date: 20090226
  Receipt Date: 20090121
  Transmission Date: 20090719
  Serious: No
  Sender: FDA-Public Use
  Company Number: US-BAYER-200911454NA

PATIENT
  Age: 65 Year
  Sex: Male
  Weight: 86 kg

DRUGS (11)
  1. ULTRAVIST 150 [Suspect]
     Indication: ANGIOGRAM
     Dosage: TOTAL DAILY DOSE: 100 ML  UNIT DOSE: 500 ML
     Dates: start: 20090120, end: 20090120
  2. LOPRESSOR [Concomitant]
  3. METFORMIN [Concomitant]
  4. GLUCOTROL [Concomitant]
  5. LACTULOSE [Concomitant]
  6. LASIX [Concomitant]
  7. LEXAPRO [Concomitant]
  8. NAPROCIN [Concomitant]
  9. PRIMADAL [Concomitant]
  10. AMCIX [Concomitant]
  11. PROSPROTIX [Concomitant]

REACTIONS (2)
  - PRURITUS [None]
  - URTICARIA [None]
